FAERS Safety Report 21868584 (Version 1)
Quarter: 2023Q1

REPORT INFORMATION
  Report Type: Spontaneous
  Country: US (occurrence: None)
  Receive Date: 20230117
  Receipt Date: 20230117
  Transmission Date: 20230418
  Serious: Yes (Hospitalization)
  Sender: FDA-Public Use
  Company Number: US-ROCHE-3265036

PATIENT

DRUGS (1)
  1. TNKASE [Suspect]
     Active Substance: TENECTEPLASE
     Indication: Cerebrovascular accident
     Dosage: ADMINISTERED AS A ONE-TIME BOLUS OVER 5 SECONDS ;ONGOING: UNKNOWN
     Route: 040

REACTIONS (2)
  - Off label use [Unknown]
  - Haemorrhage intracranial [Unknown]
